FAERS Safety Report 6507779-3 (Version None)
Quarter: 2009Q4

REPORT INFORMATION
  Report Type: 
  Country: None (occurrence: None)
  Receive Date: 20091221
  Receipt Date: 20091211
  Transmission Date: 20100525
  Serious: Yes (Hospitalization, Other)
  Sender: FDA-Public Use
  Company Number: JP-MERCK-0912USA00992

PATIENT
  Age: 77 Year
  Sex: Female
  Weight: 38 kg

DRUGS (3)
  1. STROMECTOL [Suspect]
     Indication: ACARODERMATITIS
     Route: 048
     Dates: start: 20091009, end: 20091009
  2. IMIDOL [Suspect]
     Indication: RESTLESSNESS
     Route: 048
     Dates: start: 20091005, end: 20091012
  3. LASIX [Concomitant]
     Route: 048
     Dates: start: 20091011

REACTIONS (4)
  - ERYTHEMA MULTIFORME [None]
  - GENERALISED OEDEMA [None]
  - GLOMERULONEPHRITIS ACUTE [None]
  - PLATELET COUNT DECREASED [None]
